FAERS Safety Report 7198590-1 (Version None)
Quarter: 2010Q4

REPORT INFORMATION
  Report Type: 
  Country: None (occurrence: None)
  Receive Date: 20101227
  Receipt Date: 20101221
  Transmission Date: 20110411
  Serious: Yes (Hospitalization, Other)
  Sender: FDA-Public Use
  Company Number: BR-ELI_LILLY_AND_COMPANY-BR201012005460

PATIENT
  Sex: Female
  Weight: 69.5 kg

DRUGS (5)
  1. GEMCITABINE HCL [Suspect]
     Indication: BREAST CANCER METASTATIC
     Dosage: 1250 MG/M2, OTHER
     Route: 042
     Dates: start: 20100706
  2. PACLITAXEL [Suspect]
     Indication: BREAST CANCER METASTATIC
     Dosage: 175 MG/M2, OTHER
     Route: 042
     Dates: start: 20100706
  3. AMITRIPTILINA [Concomitant]
     Dosage: UNK, UNKNOWN
     Route: 065
     Dates: end: 20100818
  4. OMEPRAZOLE [Concomitant]
     Dosage: UNK, UNKNOWN
     Route: 065
     Dates: end: 20090101
  5. CODEX [Concomitant]
     Dosage: UNK, UNKNOWN
     Route: 065
     Dates: end: 20100501

REACTIONS (2)
  - BRONCHOPNEUMONIA [None]
  - PALPITATIONS [None]
